FAERS Safety Report 5796640-8 (Version None)
Quarter: 2008Q3

REPORT INFORMATION
  Report Type: 
  Country: None (occurrence: None)
  Receive Date: 20080701
  Receipt Date: 20080624
  Transmission Date: 20090109
  Serious: Yes (Life-Threatening, Other)
  Sender: FDA-Public Use
  Company Number: FR-JNJFOC-20070902386

PATIENT
  Age: 50 Year
  Sex: Male
  Weight: 93 kg

DRUGS (7)
  1. REMICADE [Suspect]
     Dosage: TOTAL OF 13 INFUSIONS
     Route: 042
  2. REMICADE [Suspect]
     Dosage: 7 MORE INFUSIONS.
     Route: 042
  3. REMICADE [Suspect]
     Route: 042
  4. REMICADE [Suspect]
     Route: 042
  5. REMICADE [Suspect]
     Route: 042
  6. REMICADE [Suspect]
     Indication: PSORIASIS
     Route: 042
  7. ENBREL [Suspect]
     Indication: PSORIASIS

REACTIONS (1)
  - EXTRANODAL MARGINAL ZONE B-CELL LYMPHOMA (MALT TYPE) [None]
